FAERS Safety Report 22880620 (Version 2)
Quarter: 2024Q2

REPORT INFORMATION
  Report Type: Report from Study
  Country: JP (occurrence: JP)
  Receive Date: 20230829
  Receipt Date: 20240529
  Transmission Date: 20240715
  Serious: Yes (Other)
  Sender: FDA-Public Use
  Company Number: JP-CELLTRION INC.-2020JP024826

PATIENT

DRUGS (12)
  1. INFLIXIMAB-DYYB [Suspect]
     Active Substance: INFLIXIMAB-DYYB
     Indication: Colitis ulcerative
     Dosage: 255 MILLIGRAM (WEIGHT: 51.0 KG)
     Route: 041
     Dates: start: 20181120, end: 20181120
  2. INFLIXIMAB-DYYB [Suspect]
     Active Substance: INFLIXIMAB-DYYB
     Dosage: 265 MILLIGRAM (WEIGHT: 52.7 KG)
     Route: 041
     Dates: start: 20190115, end: 20190115
  3. INFLIXIMAB-DYYB [Suspect]
     Active Substance: INFLIXIMAB-DYYB
     Dosage: 270 MILLIGRAM (WEIGHT: 54.0 KG)
     Route: 041
     Dates: start: 20190312, end: 20190312
  4. INFLIXIMAB-DYYB [Suspect]
     Active Substance: INFLIXIMAB-DYYB
     Dosage: 270 MILLIGRAM (WEIGHT: 53.9 KG)
     Route: 041
     Dates: start: 20190507, end: 20190507
  5. INFLIXIMAB-DYYB [Suspect]
     Active Substance: INFLIXIMAB-DYYB
     Dosage: 270 MILLIGRAM (WEIGHT: 53.8 KG)
     Route: 041
     Dates: start: 20191105, end: 20191105
  6. INFLIXIMAB-DYYB [Suspect]
     Active Substance: INFLIXIMAB-DYYB
     Dosage: 265 MILLIGRAM (WEIGHT: 53.5 KG)
     Route: 041
     Dates: start: 20201209, end: 20201209
  7. INFLIXIMAB-DYYB [Suspect]
     Active Substance: INFLIXIMAB-DYYB
     Dosage: UNK (WEIGHT: 53 KG)
     Route: 041
     Dates: start: 20211207, end: 20211207
  8. INFLIXIMAB-DYYB [Suspect]
     Active Substance: INFLIXIMAB-DYYB
     Dosage: 265 MILLIGRAM (WEIGHT: 52.7 KG)
     Route: 041
     Dates: start: 20221129, end: 20221129
  9. INFLIXIMAB-DYYB [Suspect]
     Active Substance: INFLIXIMAB-DYYB
     Dosage: 265 MILLIGRAM (WEIGHT: 53.2 KG)
     Route: 041
     Dates: start: 20231030, end: 20231030
  10. MESALAMINE [Concomitant]
     Active Substance: MESALAMINE
     Dosage: 3600 MILLIGRAM/DAY
     Route: 048
     Dates: end: 20200306
  11. MESALAMINE [Concomitant]
     Active Substance: MESALAMINE
     Dosage: 2400 MILLIGRAM/DAY
     Route: 048
     Dates: start: 20170307
  12. AZATHIOPRINE [Concomitant]
     Active Substance: AZATHIOPRINE
     Dosage: 75 MILLIGRAM/DAY
     Route: 048
     Dates: start: 20161208

REACTIONS (13)
  - Large intestine polyp [Recovered/Resolved]
  - Large intestine polyp [Recovered/Resolved]
  - Sputum increased [Recovered/Resolved]
  - Sputum increased [Recovered/Resolved]
  - Nasal congestion [Recovered/Resolved]
  - Nasopharyngitis [Unknown]
  - Constipation [Recovered/Resolved]
  - Cough [Recovered/Resolved]
  - Cystitis [Recovered/Resolved]
  - Skin papilloma [Not Recovered/Not Resolved]
  - Underdose [Unknown]
  - Overdose [Unknown]
  - Intentional product use issue [Unknown]

NARRATIVE: CASE EVENT DATE: 20190115
